FAERS Safety Report 4629033-7 (Version None)
Quarter: 2005Q2

REPORT INFORMATION
  Report Type: 
  Country: None (occurrence: None)
  Receive Date: 20050405
  Receipt Date: 20050405
  Transmission Date: 20051028
  Serious: Yes (Other)
  Sender: FDA-Public Use
  Company Number: None

PATIENT
  Age: 57 Year
  Sex: Female
  Weight: 54.7 kg

DRUGS (2)
  1. GEMCITABINE 1000MG/M2 I.V. - 100 MIN INFUSION [Suspect]
     Indication: PANCREATIC CARCINOMA
     Dosage: 1000MG/M2 I.V., Q 14 DAYS
     Route: 042
     Dates: start: 20041117
  2. OXALIPLATIN 100MG/M2 I.V.-120 MIN INFUS. [Suspect]
     Dosage: 100 MG/M2 IV Q 14 DAYS
     Route: 042
     Dates: end: 20050119

REACTIONS (2)
  - NEUTROPHIL COUNT DECREASED [None]
  - WHITE BLOOD CELL COUNT DECREASED [None]
